FAERS Safety Report 4659945-X (Version None)
Quarter: 2005Q2

REPORT INFORMATION
  Report Type: 
  Country: None (occurrence: None)
  Receive Date: 20050502
  Receipt Date: 20041119
  Transmission Date: 20051028
  Serious: Yes (Hospitalization)
  Sender: FDA-Public Use
  Company Number: US-JNJFOC-20041100341

PATIENT
  Age: 84 Year
  Sex: Male
  Weight: 93.441 kg

DRUGS (9)
  1. VIADUR [Suspect]
     Indication: PROSTATE CANCER
     Dosage: 120 UG, 1 IN 1 DAY, SUBCUTANEOUS
     Route: 058
     Dates: start: 20040714, end: 20041027
  2. DILANTIN [Concomitant]
  3. LEVOTHYROID (LEVOTHYROXINE) [Concomitant]
  4. LANOXIN [Concomitant]
  5. LOPRESSOR [Concomitant]
  6. AMIODARONE [Concomitant]
  7. CAPTOPRIL [Concomitant]
  8. LASIX [Concomitant]
  9. COUMADIN [Concomitant]

REACTIONS (2)
  - APPLICATION SITE OEDEMA [None]
  - EXTRUSION OF DEVICE [None]
